FAERS Safety Report 13275964 (Version 1)
Quarter: 2017Q1

REPORT INFORMATION
  Report Type: Report from Study
  Country: ES (occurrence: ES)
  Receive Date: 20170228
  Receipt Date: 20170228
  Transmission Date: 20170428
  Serious: Yes (Other)
  Sender: FDA-Public Use
  Company Number: ES-SUN PHARMACEUTICAL INDUSTRIES LTD-2017RR-134671

PATIENT
  Age: 62 Year

DRUGS (2)
  1. GEMCITABINE [Suspect]
     Active Substance: GEMCITABINE\GEMCITABINE HYDROCHLORIDE
     Indication: PANCREATIC CARCINOMA METASTATIC
     Dosage: 1000 MG/M2, ON DAYS 1,8, 15 EACH CYCLE, IN 28-DAY CYCLES
     Route: 042
     Dates: start: 201301
  2. NAB-PACLITAXEL [Suspect]
     Active Substance: PACLITAXEL
     Indication: PANCREATIC CARCINOMA METASTATIC
     Dosage: 125 MG/M2, ON DAYS 1,8, 15 EACH CYCLE, IN 28-DAY CYCLES
     Route: 042
     Dates: start: 201301

REACTIONS (2)
  - Arthralgia [Unknown]
  - Neuropathy peripheral [Unknown]
